FAERS Safety Report 5405646-X (Version None)
Quarter: 2007Q3

REPORT INFORMATION
  Report Type: 
  Country: None (occurrence: None)
  Receive Date: 20070806
  Receipt Date: 20070730
  Transmission Date: 20080115
  Serious: Yes (Other)
  Sender: FDA-Public Use
  Company Number: PHBS2007IN11647

PATIENT
  Sex: Male

DRUGS (1)
  1. VOVERAN [Suspect]
     Indication: PAIN

REACTIONS (3)
  - INJECTION SITE DISCOLOURATION [None]
  - INJECTION SITE INDURATION [None]
  - INJECTION SITE NECROSIS [None]
